FAERS Safety Report 16874844 (Version 2)
Quarter: 2020Q1

REPORT INFORMATION
  Report Type: Spontaneous
  Country: DE (occurrence: DE)
  Receive Date: 20191001
  Receipt Date: 20200220
  Transmission Date: 20200409
  Serious: Yes (Death, Other)
  Sender: FDA-Public Use
  Company Number: PHHY2019DE226448

PATIENT
  Age: 73 Year
  Sex: Female

DRUGS (13)
  1. SULBACTAM SODIUM [Suspect]
     Active Substance: SULBACTAM SODIUM
     Indication: STRONGYLOIDIASIS
     Dosage: UNK
     Route: 065
  2. PREDNISOLONE. [Suspect]
     Active Substance: PREDNISOLONE
     Dosage: 25 MG, QD
     Route: 065
  3. PREDNISOLONE. [Suspect]
     Active Substance: PREDNISOLONE
     Indication: GLOMERULONEPHRITIS
     Dosage: 60 MG, Q24H
     Route: 065
  4. CO VALSARTAN [Concomitant]
     Indication: BLOOD PRESSURE INCREASED
  5. BISOPROLOL [Concomitant]
     Active Substance: BISOPROLOL
     Indication: BLOOD PRESSURE INCREASED
  6. APIXABAN [Concomitant]
     Active Substance: APIXABAN
     Indication: ATRIAL FIBRILLATION
     Dosage: UNK
     Route: 065
  7. BISOPROLOL [Concomitant]
     Active Substance: BISOPROLOL
     Indication: ATRIAL FIBRILLATION
     Dosage: UNK
     Route: 065
  8. BISOPROLOL [Concomitant]
     Active Substance: BISOPROLOL
     Indication: ARRHYTHMIA
  9. APIXABAN [Concomitant]
     Active Substance: APIXABAN
     Indication: BLOOD PRESSURE MEASUREMENT
  10. APIXABAN [Concomitant]
     Active Substance: APIXABAN
     Indication: ARRHYTHMIA
  11. CO VALSARTAN [Concomitant]
     Indication: ATRIAL FIBRILLATION
     Route: 065
  12. SULBACTAM SODIUM [Suspect]
     Active Substance: SULBACTAM SODIUM
     Indication: SEPSIS
  13. CO VALSARTAN [Concomitant]
     Indication: ARRHYTHMIA

REACTIONS (8)
  - Drug ineffective for unapproved indication [Fatal]
  - Off label use [Fatal]
  - Sepsis [Unknown]
  - Septic shock [Fatal]
  - Strongyloidiasis [Fatal]
  - Ulcer [Unknown]
  - Abdominal pain [Fatal]
  - Dyspnoea [Unknown]
